FAERS Safety Report 20500117 (Version 1)
Quarter: 2022Q1

REPORT INFORMATION
  Report Type: Spontaneous
  Country: US (occurrence: US)
  Receive Date: 20220222
  Receipt Date: 20220222
  Transmission Date: 20220423
  Serious: Yes (Death, Hospitalization)
  Sender: FDA-Public Use
  Company Number: US-STRIDES ARCOLAB LIMITED-2022SP001588

PATIENT
  Age: 66 Year
  Sex: Female

DRUGS (6)
  1. PREDNISOLONE [Suspect]
     Active Substance: PREDNISOLONE
     Indication: Crohn^s disease
     Dosage: UNK
     Route: 065
  2. PREDNISOLONE [Suspect]
     Active Substance: PREDNISOLONE
     Indication: Renal transplant
  3. INFLIXIMAB [Suspect]
     Active Substance: INFLIXIMAB
     Indication: Renal transplant
     Dosage: UNK
     Route: 065
  4. INFLIXIMAB [Suspect]
     Active Substance: INFLIXIMAB
     Indication: Crohn^s disease
  5. MESALAMINE [Concomitant]
     Active Substance: MESALAMINE
     Indication: Renal transplant
     Dosage: UNK
     Route: 065
  6. MESALAMINE [Concomitant]
     Active Substance: MESALAMINE
     Indication: Crohn^s disease

REACTIONS (10)
  - Cytomegalovirus gastrointestinal infection [Fatal]
  - Cytomegalovirus mucocutaneous ulcer [Fatal]
  - Disseminated cytomegaloviral infection [Fatal]
  - Respiratory failure [Fatal]
  - Shock [Fatal]
  - Hypotension [Unknown]
  - Mental status changes [Unknown]
  - Acute kidney injury [Unknown]
  - Herpes simplex [Unknown]
  - Pseudomonas infection [Unknown]
